FAERS Safety Report 25486913 (Version 2)
Quarter: 2025Q3

REPORT INFORMATION
  Report Type: Spontaneous
  Country: EU (occurrence: EU)
  Receive Date: 20250627
  Receipt Date: 20250827
  Transmission Date: 20251021
  Serious: Yes (Other)
  Sender: ROCHE
  Company Number: EU-ROCHE-10000319213

PATIENT
  Sex: Male
  Weight: 9 kg

DRUGS (2)
  1. HEMLIBRA [Suspect]
     Active Substance: EMICIZUMAB-KXWH
     Indication: Factor VIII deficiency
     Route: 058
  2. ARGININE [Concomitant]
     Active Substance: ARGININE
     Route: 042

REACTIONS (2)
  - Hepatic cytolysis [Recovered/Resolved]
  - Epstein-Barr virus antibody positive [Unknown]
